FAERS Safety Report 4871228-1 (Version None)
Quarter: 2005Q4

REPORT INFORMATION
  Report Type: 
  Country: None (occurrence: None)
  Receive Date: 20051229
  Receipt Date: 20051108
  Transmission Date: 20060501
  Serious: Yes (Death)
  Sender: FDA-Public Use
  Company Number: MK200512-0540-1

PATIENT
  Age: 22 Year
  Sex: 0

DRUGS (3)
  1. METHADOSE [Suspect]
     Dosage: PO
     Route: 048
     Dates: end: 20040101
  2. FLUOXETINE HCL [Suspect]
  3. BUPROPION HCL [Suspect]

REACTIONS (2)
  - CARDIAC ARREST [None]
  - RESPIRATORY ARREST [None]
